APPROVED DRUG PRODUCT: VERAPAMIL HYDROCHLORIDE
Active Ingredient: VERAPAMIL HYDROCHLORIDE
Strength: 5MG/2ML (2.5MG/ML)
Dosage Form/Route: SOLUTION;INTRAVENOUS
Application: A210994 | Product #001 | TE Code: AP
Applicant: AMNEAL EU LTD
Approved: Jul 13, 2018 | RLD: No | RS: No | Type: RX